FAERS Safety Report 12301812 (Version 1)
Quarter: 2016Q2

REPORT INFORMATION
  Report Type: Spontaneous
  Country: US (occurrence: US)
  Receive Date: 20160425
  Receipt Date: 20160425
  Transmission Date: 20160815
  Serious: No
  Sender: FDA-Public Use
  Company Number: US-GLAXOSMITHKLINE-US2016044790

PATIENT

DRUGS (1)
  1. NICODERM CQ [Suspect]
     Active Substance: NICOTINE
     Indication: PRODUCT USED FOR UNKNOWN INDICATION
     Dosage: 21 MG, UNK

REACTIONS (6)
  - Application site vesicles [Unknown]
  - Application site pain [Unknown]
  - Application site dryness [Unknown]
  - Pruritus [Unknown]
  - Application site erythema [Unknown]
  - Rash [Unknown]

NARRATIVE: CASE EVENT DATE: 201603
